FAERS Safety Report 7137818-0 (Version None)
Quarter: 2010Q4

REPORT INFORMATION
  Report Type: 
  Country: None (occurrence: None)
  Receive Date: 20101206
  Receipt Date: 20101122
  Transmission Date: 20110411
  Serious: Yes (Hospitalization)
  Sender: FDA-Public Use
  Company Number: PHHY2010US64660

PATIENT
  Sex: Male

DRUGS (2)
  1. TEKTURNA [Suspect]
     Indication: HYPERTENSION
     Dosage: 150 MG PER DAY
     Route: 048
  2. TEKTURNA [Suspect]
     Dosage: 300 MG PER DAY

REACTIONS (3)
  - ATRIAL FIBRILLATION [None]
  - FEELING ABNORMAL [None]
  - PALPITATIONS [None]
